FAERS Safety Report 5945265-X (Version None)
Quarter: 2008Q4

REPORT INFORMATION
  Report Type: 
  Country: None (occurrence: None)
  Receive Date: 20081107
  Receipt Date: 20081027
  Transmission Date: 20090506
  Serious: Yes (Other)
  Sender: FDA-Public Use
  Company Number: US-ELI_LILLY_AND_COMPANY-US200809004208

PATIENT
  Sex: Female

DRUGS (2)
  1. CYMBALTA [Suspect]
     Indication: NEURALGIA
     Dosage: 30 MG, 2/D
  2. CYMBALTA [Suspect]
     Dosage: 20 MG, EACH EVENING

REACTIONS (1)
  - RENAL FAILURE CHRONIC [None]
